FAERS Safety Report 10594577 (Version 2)
Quarter: 2014Q4

REPORT INFORMATION
  Report Type: Other
  Country: US (occurrence: US)
  Receive Date: 20141120
  Receipt Date: 20141120
  Transmission Date: 20150529
  Serious: No
  Sender: FDA-Public Use
  Company Number: US-LUPIN PHARMACEUTICALS INC.-E2B_00001923

PATIENT
  Age: 81 Year
  Sex: Female
  Weight: 72.64 kg

DRUGS (2)
  1. LISINOPRIL AND HYDROCHLOROTHIAZIDE TABLETS USP 20MG/12.5 MG [Suspect]
     Active Substance: HYDROCHLOROTHIAZIDE\LISINOPRIL
     Indication: HYPERTENSION
     Dosage: 20/12.5MG
  2. LEVOTHYROXINE SODIUM (GENERIC SYNTHROID) [Concomitant]
     Indication: THYROID DISORDER
     Route: 065

REACTIONS (1)
  - Gastrointestinal tract irritation [Not Recovered/Not Resolved]

NARRATIVE: CASE EVENT DATE: 201403
